FAERS Safety Report 7242771-5 (Version None)
Quarter: 2011Q1

REPORT INFORMATION
  Report Type: 
  Country: None (occurrence: None)
  Receive Date: 20110125
  Receipt Date: 20110112
  Transmission Date: 20110831
  Serious: Yes (Death)
  Sender: FDA-Public Use
  Company Number: US-KINGPHARMUSA00001-K201100084

PATIENT
  Age: 64 Year
  Sex: Male
  Weight: 58.503 kg

DRUGS (11)
  1. LISINOPRIL [Concomitant]
  2. AMBIEN [Concomitant]
  3. REMERON [Concomitant]
  4. EMBEDA [Suspect]
     Indication: PAIN
     Dosage: 30 MG, BID
     Route: 065
     Dates: start: 20100101, end: 20100101
  5. EMBEDA [Suspect]
     Dosage: 20 MG, BID
     Route: 065
     Dates: start: 20101001, end: 20100101
  6. LORTAB [Concomitant]
  7. SYMBICORT [Concomitant]
  8. PLAVIX [Concomitant]
  9. XANAX [Concomitant]
  10. COLACE [Concomitant]
  11. COMBIVENT [Concomitant]

REACTIONS (2)
  - DEATH [None]
  - DRUG INEFFECTIVE [None]
